FAERS Safety Report 18383686 (Version 1)
Quarter: 2020Q4

REPORT INFORMATION
  Report Type: Spontaneous
  Country: US (occurrence: US)
  Receive Date: 20201014
  Receipt Date: 20201014
  Transmission Date: 20210114
  Serious: Yes (Other)
  Sender: FDA-Public Use
  Company Number: US-PFIZER INC-2020394850

PATIENT
  Age: 63 Year
  Sex: Female
  Weight: 118.39 kg

DRUGS (1)
  1. PREMARIN [Suspect]
     Active Substance: ESTROGENS, CONJUGATED
     Indication: HYSTERECTOMY
     Dosage: 0.9 MG, 1X/DAY
     Route: 048

REACTIONS (4)
  - Aphonia [Unknown]
  - Sinusitis [Unknown]
  - Upper respiratory tract infection [Recovering/Resolving]
  - Pneumonia [Unknown]

NARRATIVE: CASE EVENT DATE: 2020
